FAERS Safety Report 8608487 (Version 3)
Quarter: 2013Q4

REPORT INFORMATION
  Report Type: Spontaneous
  Country: US (occurrence: US)
  Receive Date: 20120611
  Receipt Date: 20131129
  Transmission Date: 20140711
  Serious: Yes (Hospitalization, Disabling, Other)
  Sender: FDA-Public Use
  Company Number: US-ASTRAZENECA-2012SE36058

PATIENT
  Age: 51 Year
  Sex: Male
  Weight: 79.4 kg

DRUGS (28)
  1. NEXIUM [Suspect]
     Indication: GASTROOESOPHAGEAL REFLUX DISEASE
     Dosage: DAILY
     Route: 048
     Dates: start: 1996
  2. NEXIUM [Suspect]
     Indication: GASTROOESOPHAGEAL REFLUX DISEASE
     Route: 048
     Dates: start: 19981115
  3. NEXIUM [Suspect]
     Indication: GASTROOESOPHAGEAL REFLUX DISEASE
     Route: 048
     Dates: start: 20110207
  4. NEXIUM [Suspect]
     Indication: GASTROOESOPHAGEAL REFLUX DISEASE
     Route: 048
     Dates: start: 20130523
  5. FLEXERIL [Concomitant]
     Indication: MUSCLE SPASMS
     Dates: start: 20081001
  6. AMBIEN [Concomitant]
     Indication: SLEEP DISORDER
     Dates: start: 20000101
  7. POTASSIUM [Concomitant]
     Dosage: TWO A DAY
     Dates: start: 20111019
  8. ALEVE [Concomitant]
     Indication: ASTHENIA
     Dosage: THREE A DAY
     Dates: start: 20101115
  9. CENTRUM SILVER [Concomitant]
     Indication: FATIGUE
     Dosage: EVERYDAY
     Dates: start: 20020821
  10. VITAMIN B12 [Concomitant]
     Dosage: EVERYDAY
     Dates: start: 20111019
  11. FISH OIL [Concomitant]
     Dosage: THREE TIMES A DAY
     Dates: start: 20020821
  12. VITAMIN C [Concomitant]
     Dosage: TWO TIMES A DAY
     Dates: start: 20111019
  13. CALCIUM [Concomitant]
     Dosage: TWO TIMES A DAY
     Dates: start: 20111019
  14. AURATEK [Concomitant]
     Dosage: TWO TIMES A DAY
     Dates: start: 20111019
  15. DEXAMETHASONE [Concomitant]
  16. HYDROCODONE-ACETAMENOPHEN [Concomitant]
     Indication: PAIN
     Dosage: 10-325 MG TAKE 1/2 TABLET EVERY 4 HOURS
  17. METOPROLOL SUCC [Concomitant]
     Dates: start: 20110104
  18. ARTHROTEC [Concomitant]
     Dosage: 75-200 MG
     Dates: start: 20110120
  19. VIAGRA [Concomitant]
     Dates: start: 20110121
  20. CRESTOR [Concomitant]
     Dates: start: 20110207
  21. CYCLOBENZAPRINE [Concomitant]
     Dates: start: 20110208
  22. CEPHALEXIN [Concomitant]
     Dates: start: 20110214
  23. FLUCONAZOLE [Concomitant]
     Dates: start: 20110420
  24. LIVALO [Concomitant]
     Dates: start: 20120112
  25. ATORVASTATIN [Concomitant]
  26. DILTIAZEM [Concomitant]
     Dosage: 24HR 120 MG
     Dates: start: 20130508
  27. DICLOFENAC [Concomitant]
     Dosage: 24HR 120 MG
     Dates: start: 20130428
  28. NITROSTAT [Concomitant]
     Dates: start: 20130428

REACTIONS (17)
  - Nerve compression [Unknown]
  - Intervertebral disc disorder [Unknown]
  - Arterial catheterisation [Unknown]
  - Myocardial infarction [Unknown]
  - Ill-defined disorder [Unknown]
  - Spinal cord compression [Unknown]
  - Osteoporosis [Unknown]
  - Multiple fractures [Unknown]
  - Joint injury [Unknown]
  - Nose deformity [Unknown]
  - Back disorder [Unknown]
  - Intervertebral disc protrusion [Unknown]
  - Arthritis [Unknown]
  - Cor pulmonale acute [Unknown]
  - Cervical myelopathy [Unknown]
  - Muscular weakness [Unknown]
  - Depression [Unknown]
